FAERS Safety Report 5779554-9 (Version None)
Quarter: 2008Q2

REPORT INFORMATION
  Report Type: 
  Country: None (occurrence: None)
  Receive Date: 20080619
  Receipt Date: 20070425
  Transmission Date: 20081010
  Serious: Yes (Hospitalization)
  Sender: FDA-Public Use
  Company Number: US-ASTRAZENECA-2007UW08212

PATIENT
  Sex: Female

DRUGS (1)
  1. ATACAND [Suspect]
     Dosage: 16/12.5 MG
     Route: 048
     Dates: start: 20070423

REACTIONS (1)
  - BACK PAIN [None]
